FAERS Safety Report 8028567-5 (Version None)
Quarter: 2012Q1

REPORT INFORMATION
  Report Type: 
  Country: None (occurrence: None)
  Receive Date: 20120106
  Receipt Date: 20111019
  Transmission Date: 20120608
  Serious: No
  Sender: FDA-Public Use
  Company Number: US-MYLANLABS-2011S1021833

PATIENT
  Age: 60 Year
  Sex: Female

DRUGS (3)
  1. METHOTREXATE [Suspect]
     Indication: POLYMYOSITIS
     Dates: start: 20080101
  2. AZATHIOPRINE [Suspect]
     Indication: POLYMYOSITIS
     Dates: start: 20080101
  3. PREDNISONE TAB [Suspect]
     Indication: POLYMYOSITIS

REACTIONS (4)
  - GAIT DISTURBANCE [None]
  - FATIGUE [None]
  - ASTHENIA [None]
  - BLOOD CREATINE PHOSPHOKINASE INCREASED [None]
